FAERS Safety Report 5213847-9 (Version None)
Quarter: 2007Q1

REPORT INFORMATION
  Report Type: 
  Country: None (occurrence: None)
  Receive Date: 20070117
  Receipt Date: 20070103
  Transmission Date: 20070707
  Serious: Yes (Hospitalization, Other)
  Sender: FDA-Public Use
  Company Number: 2007SP000175

PATIENT
  Age: 53 Year
  Sex: Male

DRUGS (4)
  1. PEG-INTRON [Suspect]
     Indication: HEPATITIS C
     Dosage: 12 MCG;QW;SC
     Route: 058
     Dates: start: 20060724
  2. RIBAVIRIN [Suspect]
     Indication: HEPATITIS C
     Dosage: 400 MG;BID;PO
     Route: 048
     Dates: start: 20060724
  3. CLONAZEPAM [Concomitant]
  4. IBUPROFEN [Concomitant]

REACTIONS (19)
  - ANGER [None]
  - ASTHENIA [None]
  - BLOOD PRESSURE DECREASED [None]
  - BRADYCARDIA [None]
  - CORONARY ARTERY OCCLUSION [None]
  - CRYING [None]
  - DIZZINESS [None]
  - DYSARTHRIA [None]
  - DYSPEPSIA [None]
  - DYSPNOEA [None]
  - FATIGUE [None]
  - GAIT DISTURBANCE [None]
  - HEADACHE [None]
  - HEART RATE DECREASED [None]
  - HYPOAESTHESIA [None]
  - MOOD SWINGS [None]
  - PAIN IN EXTREMITY [None]
  - PRESYNCOPE [None]
  - SICK SINUS SYNDROME [None]
